FAERS Safety Report 4830113-1 (Version None)
Quarter: 2005Q4

REPORT INFORMATION
  Report Type: 
  Country: None (occurrence: None)
  Receive Date: 20051115
  Receipt Date: 20051115
  Transmission Date: 20060501
  Serious: Yes (Hospitalization, Other)
  Sender: FDA-Public Use
  Company Number: None

PATIENT
  Sex: Female
  Weight: 94 kg

DRUGS (2)
  1. CARBOPLATIN [Suspect]
     Indication: SMALL CELL LUNG CANCER STAGE UNSPECIFIED
     Dosage: SEE IMAGE
     Dates: start: 20051003
  2. ETOPOSIDE [Suspect]
     Dosage: SEE IMAGE

REACTIONS (4)
  - DRUG DOSE OMISSION [None]
  - DYSPHAGIA [None]
  - ODYNOPHAGIA [None]
  - RADIATION OESOPHAGITIS [None]
